FAERS Safety Report 5377430-7 (Version None)
Quarter: 2007Q3

REPORT INFORMATION
  Report Type: 
  Country: None (occurrence: None)
  Receive Date: 20070703
  Receipt Date: 20070627
  Transmission Date: 20080115
  Serious: Yes (Life-Threatening, Hospitalization)
  Sender: FDA-Public Use
  Company Number: B0477458A

PATIENT
  Age: 42 Year
  Sex: Male
  Weight: 80 kg

DRUGS (2)
  1. AUGMENTIN '125' [Suspect]
     Indication: INFECTION PROPHYLAXIS
     Dosage: 2.6G THREE TIMES PER DAY
     Route: 048
     Dates: start: 20070529, end: 20070601
  2. NOLOTIL [Concomitant]
     Indication: PAIN
     Dosage: 575MG SINGLE DOSE
     Route: 048
     Dates: start: 20070529, end: 20070529

REACTIONS (4)
  - HEPATITIS [None]
  - JAUNDICE [None]
  - PRURITUS [None]
  - VOMITING [None]
